FAERS Safety Report 6228728-1 (Version None)
Quarter: 2009Q2

REPORT INFORMATION
  Report Type: 
  Country: None (occurrence: None)
  Receive Date: 20090615
  Receipt Date: 20090605
  Transmission Date: 20091009
  Serious: Yes (Other)
  Sender: FDA-Public Use
  Company Number: ES-JNJFOC-20090603213

PATIENT
  Sex: Male
  Weight: 75 kg

DRUGS (5)
  1. INVEGA [Suspect]
     Route: 048
  2. INVEGA [Suspect]
     Indication: SCHIZOPHRENIA, PARANOID TYPE
     Route: 048
  3. ABILIFY [Concomitant]
     Indication: SCHIZOPHRENIA, PARANOID TYPE
  4. ZYPREXA [Concomitant]
     Indication: SCHIZOPHRENIA, PARANOID TYPE
  5. TRILEPTAL [Concomitant]
     Indication: DRUG USE FOR UNKNOWN INDICATION

REACTIONS (1)
  - PERICARDITIS [None]
